FAERS Safety Report 24711474 (Version 1)
Quarter: 2024Q4

REPORT INFORMATION
  Report Type: Spontaneous
  Country: NZ (occurrence: NZ)
  Receive Date: 20241209
  Receipt Date: 20241209
  Transmission Date: 20250115
  Serious: Yes (Death)
  Sender: MYLAN
  Company Number: NZ-MYLANLABS-2024M1110540

PATIENT
  Sex: Female

DRUGS (9)
  1. CLOZARIL [Suspect]
     Active Substance: CLOZAPINE
     Indication: Schizophrenia
     Dosage: UNK
     Route: 048
     Dates: start: 20181205, end: 20241119
  2. MIDAZOLAM [Concomitant]
     Active Substance: MIDAZOLAM
     Dosage: 5 MILLIGRAM, PRN (5MG PRN)
     Route: 065
  3. BUTYLSCOPOLAMINE BROMIDE [Concomitant]
     Active Substance: BUTYLSCOPOLAMINE BROMIDE
     Dosage: 20 MILLIGRAM, PRN (20MG PRN)
     Route: 065
  4. DOCUSATE SODIUM\SENNOSIDES A AND B [Concomitant]
     Active Substance: DOCUSATE SODIUM\SENNOSIDES A AND B
     Dosage: 2 DOSAGE FORM, BID (2 TABS AT 0800 AND 1700)
     Route: 065
  5. Spiractin [Concomitant]
     Dosage: 0.5 DOSAGE FORM, AM (25MG HALF A TABLET AT 0800)
     Route: 065
  6. FUROSEMIDE [Concomitant]
     Active Substance: FUROSEMIDE
     Dosage: 40 MILLIGRAM, AM (40MG 1 TABLET AT 0800)
     Route: 065
  7. MYLOC [Concomitant]
     Dosage: 23.75 MILLIGRAM, AM (23.75MG 1 TABLET AT 0800)
     Route: 065
  8. ALLOPURINOL [Concomitant]
     Active Substance: ALLOPURINOL
     Dosage: 300 MILLIGRAM, AM(300MG 1 TABLET AT 0800)
     Route: 065
  9. VITAMIN D3 [Concomitant]
     Active Substance: CHOLECALCIFEROL
     Dosage: 1.25 MILLIGRAM, MONTHLY (ONCE A MONTH)
     Route: 065

REACTIONS (1)
  - Dementia [Fatal]
